FAERS Safety Report 23161101 (Version 1)
Quarter: 2023Q4

REPORT INFORMATION
  Report Type: Spontaneous
  Country: CN (occurrence: CN)
  Receive Date: 20231108
  Receipt Date: 20231108
  Transmission Date: 20240109
  Serious: Yes (Other)
  Sender: FDA-Public Use
  Company Number: CN-PFIZER INC-PV202300180579

PATIENT
  Age: 63 Year
  Sex: Female
  Weight: 64 kg

DRUGS (2)
  1. EPIRUBICIN [Suspect]
     Active Substance: EPIRUBICIN
     Indication: Breast cancer
     Dosage: 70 MG, 1X/DAY
     Route: 041
     Dates: start: 20230926, end: 20230927
  2. PACLITAXEL [Suspect]
     Active Substance: PACLITAXEL
     Indication: Breast cancer
     Dosage: 0.4 G, 1X/DAY
     Route: 041
     Dates: start: 20230925, end: 20230926

REACTIONS (3)
  - Myelosuppression [Recovering/Resolving]
  - Neutrophil count decreased [Recovering/Resolving]
  - Gastrointestinal infection [Recovering/Resolving]

NARRATIVE: CASE EVENT DATE: 20231005
